FAERS Safety Report 8046513-5 (Version None)
Quarter: 2012Q1

REPORT INFORMATION
  Report Type: 
  Country: None (occurrence: None)
  Receive Date: 20120113
  Receipt Date: 20120107
  Transmission Date: 20120608
  Serious: Yes (Other)
  Sender: FDA-Public Use
  Company Number: US-ABBOTT-12P-163-0891724-00

PATIENT
  Sex: Female

DRUGS (1)
  1. HUMIRA [Suspect]
     Indication: CROHN'S DISEASE
     Route: 058
     Dates: start: 20111101

REACTIONS (10)
  - HEARING IMPAIRED [None]
  - DIZZINESS [None]
  - NASAL CONGESTION [None]
  - RHINORRHOEA [None]
  - SPEECH DISORDER [None]
  - DYSGEUSIA [None]
  - SOMNOLENCE [None]
  - THIRST [None]
  - FATIGUE [None]
  - MUSCLE SPASMS [None]
